FAERS Safety Report 9786394 (Version 1)
Quarter: 2013Q4

REPORT INFORMATION
  Report Type: Spontaneous
  Country: US (occurrence: US)
  Receive Date: 20131227
  Receipt Date: 20131227
  Transmission Date: 20140711
  Serious: Yes (Death, Other)
  Sender: FDA-Public Use
  Company Number: US-MPIJNJ-2013MPI001379

PATIENT
  Age: 48 Year
  Sex: Male

DRUGS (1)
  1. VELCADE [Suspect]
     Indication: PLASMA CELL MYELOMA
     Dosage: 3.2 MG, 1/WEEK
     Route: 058
     Dates: start: 20130717, end: 20130912

REACTIONS (3)
  - Cardiac arrest [Fatal]
  - Septic shock [Fatal]
  - Hypoxic-ischaemic encephalopathy [Fatal]
